FAERS Safety Report 4758266-4 (Version None)
Quarter: 2005Q3

REPORT INFORMATION
  Report Type: 
  Country: None (occurrence: None)
  Receive Date: 20050831
  Receipt Date: 20050824
  Transmission Date: 20060218
  Serious: Yes (Death)
  Sender: FDA-Public Use
  Company Number: MY-MERCK-0508MYS00009

PATIENT
  Age: 30 Year
  Sex: Male

DRUGS (2)
  1. CANCIDAS [Suspect]
     Indication: FUNGAL INFECTION
     Route: 051
     Dates: start: 20050801, end: 20050801
  2. CANCIDAS [Suspect]
     Route: 051
     Dates: start: 20050801, end: 20050801

REACTIONS (1)
  - DEATH [None]
